FAERS Safety Report 9998310 (Version 2)
Quarter: 2014Q2

REPORT INFORMATION
  Report Type: Spontaneous
  Country: RS (occurrence: RS)
  Receive Date: 20140312
  Receipt Date: 20140422
  Transmission Date: 20141212
  Serious: Yes (Hospitalization)
  Sender: FDA-Public Use
  Company Number: RS-ROCHE-1361743

PATIENT
  Age: 54 Year
  Sex: Female
  Weight: 62 kg

DRUGS (2)
  1. BONVIVA [Suspect]
     Indication: OSTEOPOROSIS
     Route: 048
     Dates: start: 2008, end: 2011
  2. BONVIVA [Suspect]
     Route: 041
     Dates: start: 201308

REACTIONS (3)
  - Cholecystectomy [Recovered/Resolved]
  - Peritonitis [Recovered/Resolved]
  - Pancreatitis [Recovered/Resolved]
